FAERS Safety Report 8307795-5 (Version None)
Quarter: 2012Q2

REPORT INFORMATION
  Report Type: 
  Country: None (occurrence: None)
  Receive Date: 20120424
  Receipt Date: 20120412
  Transmission Date: 20120825
  Serious: Yes (Hospitalization)
  Sender: FDA-Public Use
  Company Number: NL-PFIZER INC-2012091972

PATIENT
  Age: 48 Year
  Sex: Female
  Weight: 67 kg

DRUGS (6)
  1. PIPERACILLIN AND TAZOBACTAM [Concomitant]
     Indication: EMPYEMA
     Dosage: 49/500 G/MG
     Dates: start: 20110323, end: 20120405
  2. MOVICOLON [Concomitant]
     Indication: CONSTIPATION
     Dosage: 1 DF, AS NEEDED
     Dates: start: 20110801
  3. CRIZOTINIB [Suspect]
     Indication: NON-SMALL CELL LUNG CANCER
     Dosage: UNK
     Dates: start: 20110818
  4. AUGMENTIN '125' [Concomitant]
     Indication: EMPYEMA
     Dosage: 625 MG, 3X/DAY
     Dates: start: 20120406
  5. EBASTINE [Concomitant]
     Indication: HYPERSENSITIVITY
     Dosage: 10 MG, 1X/DAY
     Dates: start: 20110515
  6. CIPROFLOXACIN [Concomitant]
     Indication: EMPYEMA
     Dosage: 500 MG, 2X/DAY
     Dates: start: 20120406

REACTIONS (2)
  - INFECTIOUS PLEURAL EFFUSION [None]
  - PNEUMONIA [None]
